FAERS Safety Report 6427046-6 (Version None)
Quarter: 2009Q4

REPORT INFORMATION
  Report Type: 
  Country: None (occurrence: None)
  Receive Date: 20091104
  Receipt Date: 20091026
  Transmission Date: 20100525
  Serious: Yes (Other)
  Sender: FDA-Public Use
  Company Number: KP-WATSON-2009-09063

PATIENT
  Age: 45 Year
  Sex: Male

DRUGS (4)
  1. ISONIAZID [Suspect]
     Indication: TUBERCULOSIS
     Dosage: 400 MG, UNK
  2. ETHAMBUTOL HYDROCHLORIDE [Suspect]
     Indication: TUBERCULOSIS
     Dosage: 1200 MG, DAILY
  3. RIFAMPICIN [Suspect]
     Indication: TUBERCULOSIS
     Dosage: 600 MG, DAILY
  4. PYRAZINAMIDE [Suspect]
     Indication: TUBERCULOSIS
     Dosage: 1500 MG, DAILY

REACTIONS (3)
  - PARADOXICAL DRUG REACTION [None]
  - PERITONEAL TUBERCULOSIS [None]
  - TUBERCULOMA OF CENTRAL NERVOUS SYSTEM [None]
